FAERS Safety Report 7871632-3 (Version None)
Quarter: 2011Q4

REPORT INFORMATION
  Report Type: 
  Country: None (occurrence: None)
  Receive Date: 20111029
  Receipt Date: 20110304
  Transmission Date: 20120403
  Serious: No
  Sender: FDA-Public Use
  Company Number: US-AMGEN-USASP2011012347

PATIENT
  Age: 35 Year
  Sex: Male
  Weight: 87.075 kg

DRUGS (7)
  1. PREDNISONE [Concomitant]
     Dosage: 1 MG, UNK
  2. METHOTREXATE [Concomitant]
     Dosage: 2.5 MG, UNK
  3. ARAVA [Concomitant]
     Dosage: 10 MG, UNK
  4. MULTIVITAMIN                       /00097801/ [Concomitant]
  5. TYLENOL-500 [Concomitant]
     Dosage: 650 MG, UNK
  6. ENBREL [Suspect]
     Indication: PRODUCT USED FOR UNKNOWN INDICATION
     Dosage: 50 MG, QWK
  7. CALCIUM +D                         /00188401/ [Concomitant]
     Dosage: UNK

REACTIONS (3)
  - OROPHARYNGEAL PAIN [None]
  - NASAL CONGESTION [None]
  - ODYNOPHAGIA [None]
